FAERS Safety Report 12259937 (Version 1)
Quarter: 2016Q2

REPORT INFORMATION
  Report Type: Spontaneous
  Country: US (occurrence: US)
  Receive Date: 20160412
  Receipt Date: 20160412
  Transmission Date: 20160815
  Serious: Yes (Death, Other)
  Sender: FDA-Public Use
  Company Number: US-ACTELION-A-NJ2016-133972

PATIENT
  Age: 82 Year
  Sex: Female

DRUGS (12)
  1. OPSUMIT [Suspect]
     Active Substance: MACITENTAN
     Indication: PULMONARY ARTERIAL HYPERTENSION
     Dosage: 10 MG, QD
     Route: 048
     Dates: start: 20150331
  2. CALCIUM [Concomitant]
     Active Substance: CALCIUM
  3. SILDENAFIL. [Concomitant]
     Active Substance: SILDENAFIL
  4. MULTIVITAMIN [Concomitant]
     Active Substance: VITAMINS
  5. METOPROLOL. [Concomitant]
     Active Substance: METOPROLOL
  6. TYLENOL [Concomitant]
     Active Substance: ACETAMINOPHEN
  7. PLAQUENIL [Concomitant]
     Active Substance: HYDROXYCHLOROQUINE SULFATE
  8. ASPIRIN. [Concomitant]
     Active Substance: ASPIRIN
     Dosage: 81 MG, UNK
  9. OXYGEN. [Concomitant]
     Active Substance: OXYGEN
  10. CRANBERRY. [Concomitant]
     Active Substance: CRANBERRY
  11. LASIX [Concomitant]
     Active Substance: FUROSEMIDE
  12. SYNTHROID [Concomitant]
     Active Substance: LEVOTHYROXINE SODIUM

REACTIONS (4)
  - Pneumonia [Unknown]
  - Cardiac failure [Fatal]
  - General physical health deterioration [Unknown]
  - Oxygen saturation decreased [Unknown]

NARRATIVE: CASE EVENT DATE: 20160207
